FAERS Safety Report 7202795-0 (Version None)
Quarter: 2010Q4

REPORT INFORMATION
  Report Type: 
  Country: None (occurrence: None)
  Receive Date: 20101229
  Receipt Date: 20100926
  Transmission Date: 20110411
  Serious: No
  Sender: FDA-Public Use
  Company Number: US-BAUSCH-2010BL005441

PATIENT
  Age: 5 Year
  Sex: Female

DRUGS (1)
  1. BESIVANCE [Suspect]
     Indication: CONJUNCTIVITIS INFECTIVE
     Route: 047
     Dates: start: 20100921, end: 20100925

REACTIONS (1)
  - CONJUNCTIVAL HAEMORRHAGE [None]
